FAERS Safety Report 14979228 (Version 2)
Quarter: 2018Q3

REPORT INFORMATION
  Report Type: Spontaneous
  Country: PK (occurrence: PK)
  Receive Date: 20180606
  Receipt Date: 20180720
  Transmission Date: 20181010
  Serious: Yes (Life-Threatening, Other)
  Sender: FDA-Public Use
  Company Number: PHHY2018PK016403

PATIENT
  Sex: Male

DRUGS (2)
  1. TEGRAL [Suspect]
     Active Substance: CARBAMAZEPINE
     Indication: FOCAL DYSCOGNITIVE SEIZURES
     Dosage: 400 MG, TID
     Route: 048
  2. TEGRAL [Suspect]
     Active Substance: CARBAMAZEPINE
     Dosage: GRADUALLY REDUCED
     Route: 048
     Dates: start: 201712, end: 201805

REACTIONS (11)
  - Rash [Unknown]
  - Skin exfoliation [Unknown]
  - Pain [Unknown]
  - Pruritus [Unknown]
  - Arthralgia [Unknown]
  - Malaise [Unknown]
  - Skin injury [Not Recovered/Not Resolved]
  - Chills [Unknown]
  - Mucous membrane disorder [Unknown]
  - Electrolyte imbalance [Unknown]
  - Pyrexia [Unknown]

NARRATIVE: CASE EVENT DATE: 20171201
